FAERS Safety Report 17207190 (Version 1)
Quarter: 2019Q4

REPORT INFORMATION
  Report Type: Spontaneous
  Country: TH (occurrence: TH)
  Receive Date: 20191227
  Receipt Date: 20191227
  Transmission Date: 20200122
  Serious: Yes (Other)
  Sender: FDA-Public Use
  Company Number: TH-ROCHE-2502770

PATIENT
  Age: 48 Year
  Sex: Female

DRUGS (3)
  1. TRASTUZUMAB. [Suspect]
     Active Substance: TRASTUZUMAB
     Indication: NEOPLASM MALIGNANT
     Route: 065
  2. PACLITAXEL. [Suspect]
     Active Substance: PACLITAXEL
     Indication: BREAST CANCER
     Route: 065
     Dates: end: 20190712
  3. PERTUZUMAB. [Suspect]
     Active Substance: PERTUZUMAB
     Indication: NEOPLASM MALIGNANT
     Route: 065
     Dates: end: 20190712

REACTIONS (3)
  - Metastases to lymph nodes [Unknown]
  - Febrile neutropenia [Unknown]
  - Therapy partial responder [Unknown]
